FAERS Safety Report 17352649 (Version 1)
Quarter: 2020Q1

REPORT INFORMATION
  Report Type: Spontaneous
  Country: US (occurrence: US)
  Receive Date: 20200131
  Receipt Date: 20200131
  Transmission Date: 20200409
  Serious: Yes (Hospitalization)
  Sender: FDA-Public Use
  Company Number: US-009507513-2001USA009957

PATIENT
  Sex: Male

DRUGS (1)
  1. JANUMET [Suspect]
     Active Substance: METFORMIN HYDROCHLORIDE\SITAGLIPTIN PHOSPHATE
     Dosage: UNK
     Route: 048
     Dates: start: 201401

REACTIONS (7)
  - Blood glucose increased [Recovered/Resolved]
  - Musculoskeletal stiffness [Unknown]
  - Abdominal pain upper [Unknown]
  - Musculoskeletal pain [Recovered/Resolved]
  - Medial tibial stress syndrome [Unknown]
  - Arthropathy [Unknown]
  - Back pain [Unknown]

NARRATIVE: CASE EVENT DATE: 201402
